FAERS Safety Report 7018703-1 (Version None)
Quarter: 2010Q3

REPORT INFORMATION
  Report Type: 
  Country: None (occurrence: None)
  Receive Date: 20100928
  Receipt Date: 20100913
  Transmission Date: 20110219
  Serious: Yes (Hospitalization)
  Sender: FDA-Public Use
  Company Number: US-GENENTECH-306977

PATIENT
  Age: 75 Year
  Sex: Male

DRUGS (2)
  1. RITUXIMAB [Suspect]
     Indication: CHRONIC LYMPHOCYTIC LEUKAEMIA
     Dosage: UNK
     Route: 065
  2. METHYLPREDNISOLONE [Suspect]
     Indication: CHRONIC LYMPHOCYTIC LEUKAEMIA
     Dosage: UNK
     Route: 065

REACTIONS (6)
  - ANAEMIA [None]
  - BLOOD IMMUNOGLOBULIN M INCREASED [None]
  - CONDITION AGGRAVATED [None]
  - DEAFNESS [None]
  - DEPRESSED LEVEL OF CONSCIOUSNESS [None]
  - HYPERVISCOSITY SYNDROME [None]
